FAERS Safety Report 6529508-X (Version None)
Quarter: 2009Q4

REPORT INFORMATION
  Report Type: 
  Country: None (occurrence: None)
  Receive Date: 20091215
  Receipt Date: 20091130
  Transmission Date: 20100525
  Serious: Yes (Hospitalization, Other)
  Sender: FDA-Public Use
  Company Number: HAPL-012-09-GB

PATIENT
  Age: 37 Year
  Sex: Female

DRUGS (1)
  1. IMMUNE GLOBULIN INTRAVENOUS (HUMAN) [Suspect]
     Indication: ERYTHEMA INFECTIOSUM
     Dosage: 55 G I.V.
     Route: 042

REACTIONS (6)
  - ANAEMIA [None]
  - GRAFT THROMBOSIS [None]
  - HYPERAMYLASAEMIA [None]
  - NECROSIS [None]
  - PANCREATITIS NECROTISING [None]
  - PARVOVIRUS B19 TEST POSITIVE [None]
